FAERS Safety Report 7959876-3 (Version None)
Quarter: 2011Q4

REPORT INFORMATION
  Report Type: 
  Country: None (occurrence: None)
  Receive Date: 20111206
  Receipt Date: 20111130
  Transmission Date: 20120403
  Serious: Yes (Death, Other)
  Sender: FDA-Public Use
  Company Number: GXKR2011DE003511

PATIENT

DRUGS (7)
  1. DOXEPIN [Suspect]
     Dosage: 25 MG/DAY
     Route: 048
     Dates: start: 20110128, end: 20110206
  2. DOXEPIN [Suspect]
     Dosage: 50 MG/DAY
     Route: 048
     Dates: start: 20110207
  3. PANTOPRAZOLE SODIUM [Concomitant]
     Route: 048
  4. EXFORGE [Concomitant]
     Dosage: 10/160 MG
     Route: 048
     Dates: end: 20110207
  5. BISOPROLOL FUMARATE [Concomitant]
     Route: 048
     Dates: end: 20110207
  6. TARGIN [Suspect]
     Dosage: 160/80 MG
     Route: 048
     Dates: start: 20110128, end: 20110207
  7. NOVALGIN                                /SCH/ [Concomitant]
     Dosage: 1100 MG/DAY
     Route: 048
     Dates: start: 20110207

REACTIONS (1)
  - MYOCARDIAL INFARCTION [None]
